FAERS Safety Report 20916862 (Version 1)
Quarter: 2022Q2

REPORT INFORMATION
  Report Type: Report from Study
  Country: CN (occurrence: CN)
  Receive Date: 20220605
  Receipt Date: 20220605
  Transmission Date: 20220721
  Serious: Yes (Hospitalization, Other)
  Sender: FDA-Public Use
  Company Number: CN-BAXTER-2021BAX011805

PATIENT
  Age: 46 Year
  Sex: Female
  Weight: 52 kg

DRUGS (40)
  1. AMINO ACIDS\DEXTROSE\ELECTROLYTES NOS\SOYBEAN OIL [Suspect]
     Active Substance: AMINO ACIDS\DEXTROSE\ELECTROLYTES NOS\SOYBEAN OIL
     Indication: Product used for unknown indication
     Dosage: 2.99 MILLILTERS PER KILOGRM PER HOUR (ML/KG/H)
     Route: 065
     Dates: start: 20210311, end: 20210311
  2. AMINO ACIDS\DEXTROSE\ELECTROLYTES NOS\SOYBEAN OIL [Suspect]
     Active Substance: AMINO ACIDS\DEXTROSE\ELECTROLYTES NOS\SOYBEAN OIL
     Dosage: 5.4 MILLILTERS PER KILOGRM PER HOUR (ML/KG/H)
     Route: 065
     Dates: start: 20210312, end: 20210312
  3. AMINO ACIDS\DEXTROSE\ELECTROLYTES NOS\SOYBEAN OIL [Suspect]
     Active Substance: AMINO ACIDS\DEXTROSE\ELECTROLYTES NOS\SOYBEAN OIL
     Dosage: 7.88 MILLILTERS PER KILOGRM PER HOUR (ML/KG/H)
     Route: 065
     Dates: start: 20210313, end: 20210313
  4. AMINO ACIDS\DEXTROSE\ELECTROLYTES NOS\SOYBEAN OIL [Suspect]
     Active Substance: AMINO ACIDS\DEXTROSE\ELECTROLYTES NOS\SOYBEAN OIL
     Dosage: 5.77 MILLILTERS PER KILOGRM PER HOUR (ML/KG/H)
     Route: 065
     Dates: start: 20210314, end: 20210314
  5. AMINO ACIDS\DEXTROSE\ELECTROLYTES NOS\SOYBEAN OIL [Suspect]
     Active Substance: AMINO ACIDS\DEXTROSE\ELECTROLYTES NOS\SOYBEAN OIL
     Dosage: 5.77 MILLILTERS PER KILOGRM PER HOUR (ML/KG/H)
     Route: 065
     Dates: start: 20210315, end: 20210315
  6. AMINO ACIDS\DEXTROSE\ELECTROLYTES NOS\SOYBEAN OIL [Suspect]
     Active Substance: AMINO ACIDS\DEXTROSE\ELECTROLYTES NOS\SOYBEAN OIL
     Dosage: 9.6 MILLILTERS PER KILOGRM PER HOUR (ML/KG/H)
     Route: 065
     Dates: start: 20210316, end: 20210316
  7. AMINO ACIDS\DEXTROSE\ELECTROLYTES NOS\SOYBEAN OIL [Suspect]
     Active Substance: AMINO ACIDS\DEXTROSE\ELECTROLYTES NOS\SOYBEAN OIL
     Dosage: 3.98 MILLILTERS PER KILOGRM PER HOUR (ML/KG/H)
     Route: 065
     Dates: start: 20210317, end: 20210317
  8. AMINO ACIDS\DEXTROSE\ELECTROLYTES NOS\SOYBEAN OIL [Suspect]
     Active Substance: AMINO ACIDS\DEXTROSE\ELECTROLYTES NOS\SOYBEAN OIL
     Dosage: 5.77 MILLILTERS PER KILOGRM PER HOUR (ML/KG/H)
     Route: 065
     Dates: start: 20210318, end: 20210318
  9. GLYCERIN\MEDIUM-CHAIN TRIGLYCERIDES\PHOSPHOLIPID\SOYBEAN OIL [Concomitant]
     Active Substance: GLYCERIN\MEDIUM-CHAIN TRIGLYCERIDES\PHOSPHOLIPID\SOYBEAN OIL
     Indication: Intestinal obstruction
     Dosage: PERIPHERAL/CENTRAL VEIN
     Route: 042
     Dates: start: 20210311, end: 20210313
  10. GLYCERIN\MEDIUM-CHAIN TRIGLYCERIDES\PHOSPHOLIPID\SOYBEAN OIL [Concomitant]
     Active Substance: GLYCERIN\MEDIUM-CHAIN TRIGLYCERIDES\PHOSPHOLIPID\SOYBEAN OIL
     Indication: Malnutrition
  11. VITAMINS [Concomitant]
     Active Substance: VITAMINS
     Indication: Drug therapy
     Dosage: 5 ML,PRN
     Route: 065
     Dates: start: 20210311, end: 20210311
  12. VITAMINS [Concomitant]
     Active Substance: VITAMINS
     Dosage: 5 ML,PRN
     Route: 065
     Dates: start: 20210312, end: 20210312
  13. VITAMINS [Concomitant]
     Active Substance: VITAMINS
     Dosage: 5 ML,PRN
     Route: 065
     Dates: start: 20210313, end: 20210313
  14. VITAMINS [Concomitant]
     Active Substance: VITAMINS
     Dosage: 5 ML,PRN
     Route: 065
     Dates: start: 20210314, end: 20210314
  15. VITAMINS [Concomitant]
     Active Substance: VITAMINS
     Dosage: 5 ML,PRN
     Route: 065
     Dates: start: 20210315, end: 20210315
  16. VITAMINS [Concomitant]
     Active Substance: VITAMINS
     Dosage: 5 ML,PRN
     Route: 065
     Dates: start: 20210316, end: 20210316
  17. VITAMINS [Concomitant]
     Active Substance: VITAMINS
     Dosage: 5 ML,PRN
     Route: 065
     Dates: start: 20210317, end: 20210317
  18. VITAMINS [Concomitant]
     Active Substance: VITAMINS
     Dosage: 5 ML,PRN
     Route: 065
     Dates: start: 20210318, end: 20210318
  19. DEXTROSE\SODIUM CHLORIDE [Concomitant]
     Active Substance: DEXTROSE\SODIUM CHLORIDE
     Indication: Vehicle solution use
     Dosage: PERIPHERAL VEIN/CENTRALVEIN
     Route: 042
     Dates: start: 20210311, end: 20210326
  20. POTASSIUM CHLORIDE [Concomitant]
     Active Substance: POTASSIUM CHLORIDE
     Indication: Hypokalaemia
     Dosage: PERIPHERAL VEIN/CENTRALVEIN
     Route: 042
     Dates: start: 20210311, end: 20210326
  21. VITAMIN C [Concomitant]
     Active Substance: ASCORBIC ACID
     Indication: Vitamin supplementation
     Dosage: PERIPHERAL VEIN/CENTRALVEIN
     Route: 042
     Dates: start: 20210311, end: 20210326
  22. ELECTROLYTES NOS [Concomitant]
     Active Substance: ELECTROLYTES NOS
     Indication: Drug therapy
     Dosage: 5.7 GRAM,PRN
     Route: 065
     Dates: start: 20210311, end: 20210311
  23. ELECTROLYTES NOS [Concomitant]
     Active Substance: ELECTROLYTES NOS
     Dosage: 5.7 GRAM,PRN
     Route: 065
     Dates: start: 20210312, end: 20210312
  24. ELECTROLYTES NOS [Concomitant]
     Active Substance: ELECTROLYTES NOS
     Dosage: 5.7 GRAM,PRN
     Route: 065
     Dates: start: 20210313, end: 20210313
  25. ELECTROLYTES NOS [Concomitant]
     Active Substance: ELECTROLYTES NOS
     Dosage: 5.7 GRAM,PRN
     Route: 065
     Dates: start: 20210314, end: 20210314
  26. ELECTROLYTES NOS [Concomitant]
     Active Substance: ELECTROLYTES NOS
     Dosage: 5.7 GRAM,PRN
     Route: 065
     Dates: start: 20210315, end: 20210315
  27. ELECTROLYTES NOS [Concomitant]
     Active Substance: ELECTROLYTES NOS
     Dosage: 5.7 GRAM,PRN
     Route: 065
     Dates: start: 20210316, end: 20210316
  28. ELECTROLYTES NOS [Concomitant]
     Active Substance: ELECTROLYTES NOS
     Dosage: 5.7 GRAM,PRN
     Route: 065
     Dates: start: 20210317, end: 20210317
  29. ELECTROLYTES NOS [Concomitant]
     Active Substance: ELECTROLYTES NOS
     Dosage: 5.7 GRAM,PRN
     Route: 065
     Dates: start: 20210318, end: 20210318
  30. UNSPECIFIED INGREDIENT [Concomitant]
     Active Substance: UNSPECIFIED INGREDIENT
     Indication: Drug therapy
     Dosage: 30 ML,PRN
     Route: 065
     Dates: start: 20210311, end: 20210311
  31. UNSPECIFIED INGREDIENT [Concomitant]
     Active Substance: UNSPECIFIED INGREDIENT
     Dosage: 30 ML,PRN
     Route: 065
     Dates: start: 20210312, end: 20210312
  32. UNSPECIFIED INGREDIENT [Concomitant]
     Active Substance: UNSPECIFIED INGREDIENT
     Dosage: 30 ML,PRN
     Route: 065
     Dates: start: 20210313, end: 20210313
  33. UNSPECIFIED INGREDIENT [Concomitant]
     Active Substance: UNSPECIFIED INGREDIENT
     Dosage: 30 ML,PRN
     Route: 065
     Dates: start: 20210314, end: 20210314
  34. UNSPECIFIED INGREDIENT [Concomitant]
     Active Substance: UNSPECIFIED INGREDIENT
     Dosage: 30 ML,PRN
     Route: 065
     Dates: start: 20210315, end: 20210315
  35. UNSPECIFIED INGREDIENT [Concomitant]
     Active Substance: UNSPECIFIED INGREDIENT
     Dosage: 30 ML,PRN
     Route: 065
     Dates: start: 20210316, end: 20210316
  36. UNSPECIFIED INGREDIENT [Concomitant]
     Active Substance: UNSPECIFIED INGREDIENT
     Dosage: 30 ML,PRN
     Route: 065
     Dates: start: 20210317, end: 20210317
  37. UNSPECIFIED INGREDIENT [Concomitant]
     Active Substance: UNSPECIFIED INGREDIENT
     Dosage: 30 ML,PRN
     Route: 065
     Dates: start: 20210318, end: 20210318
  38. LACTULOSE [Concomitant]
     Active Substance: LACTULOSE
     Indication: Intestinal obstruction
     Dosage: 10 ML,QD
     Route: 048
     Dates: start: 20210315, end: 20210318
  39. TRAMADOL HYDROCHLORIDE [Concomitant]
     Active Substance: TRAMADOL HYDROCHLORIDE
     Indication: Intestinal obstruction
     Dosage: 100 MILLIGRAM,PRN
     Route: 030
     Dates: start: 20210315, end: 20210315
  40. TRAMADOL HYDROCHLORIDE [Concomitant]
     Active Substance: TRAMADOL HYDROCHLORIDE
     Indication: Cancer pain

REACTIONS (1)
  - Liver injury [Recovered/Resolved]

NARRATIVE: CASE EVENT DATE: 20210317
